FAERS Safety Report 20017148 (Version 1)
Quarter: 2021Q4

REPORT INFORMATION
  Report Type: Spontaneous
  Country: FR (occurrence: FR)
  Receive Date: 20211030
  Receipt Date: 20211030
  Transmission Date: 20220303
  Serious: Yes (Life-Threatening, Other)
  Sender: FDA-Public Use
  Company Number: FR-PIRAMAL PHARMA LIMITED-2021-PEL-000802

PATIENT

DRUGS (12)
  1. SEVOFLURANE [Suspect]
     Active Substance: SEVOFLURANE
     Indication: Procedural pain
     Dosage: UNK
     Route: 055
     Dates: start: 20210225, end: 20210225
  2. KETOPROFEN [Suspect]
     Active Substance: KETOPROFEN
     Indication: Procedural pain
     Dosage: UNK
     Route: 042
     Dates: start: 20210225, end: 20210225
  3. NIMESULIDE [Suspect]
     Active Substance: NIMESULIDE
     Indication: General anaesthesia
     Route: 042
     Dates: start: 20210225, end: 20210225
  4. KETAMINE [Suspect]
     Active Substance: KETAMINE
     Indication: General anaesthesia
     Dosage: UNK
     Route: 042
     Dates: start: 20210225, end: 20210225
  5. LIDOCAINE [Suspect]
     Active Substance: LIDOCAINE
     Indication: Local anaesthesia
     Dosage: UNK
     Route: 065
     Dates: start: 20210225, end: 20210225
  6. DEXAMETHASONE [Suspect]
     Active Substance: DEXAMETHASONE
     Indication: Procedural pain
     Dosage: UNK
     Route: 042
     Dates: start: 20210225, end: 20210225
  7. CEFAZOLIN [Suspect]
     Active Substance: CEFAZOLIN
     Indication: Prophylaxis
     Dosage: UNK
     Route: 042
     Dates: start: 20210225, end: 20210225
  8. PROPOFOL [Suspect]
     Active Substance: PROPOFOL
     Indication: General anaesthesia
     Dosage: UNK
     Route: 042
     Dates: start: 20210225, end: 20210225
  9. ULTIVA [Suspect]
     Active Substance: REMIFENTANIL HYDROCHLORIDE
     Indication: General anaesthesia
     Dosage: UNK
     Route: 042
     Dates: start: 20210225, end: 20210225
  10. NEFOPAM HYDROCHLORIDE [Suspect]
     Active Substance: NEFOPAM HYDROCHLORIDE
     Indication: Procedural pain
     Dosage: UNK
     Route: 042
     Dates: start: 20210225, end: 20210225
  11. ACETAMINOPHEN [Suspect]
     Active Substance: ACETAMINOPHEN
     Indication: Procedural pain
     Route: 042
     Dates: start: 20210225
  12. DROPERIDOL [Suspect]
     Active Substance: DROPERIDOL
     Indication: Procedural pain
     Route: 042
     Dates: start: 20210225, end: 20210225

REACTIONS (1)
  - Cardio-respiratory arrest [Recovered/Resolved]

NARRATIVE: CASE EVENT DATE: 20210225
